FAERS Safety Report 4871804-6 (Version None)
Quarter: 2006Q1

REPORT INFORMATION
  Report Type: 
  Country: None (occurrence: None)
  Receive Date: 20060104
  Receipt Date: 20051227
  Transmission Date: 20060701
  Serious: Yes (Other)
  Sender: FDA-Public Use
  Company Number: JP-JPN-A20053203

PATIENT
  Sex: Male

DRUGS (2)
  1. PAXIL [Suspect]
     Indication: OBSESSIVE-COMPULSIVE DISORDER
     Route: 048
  2. HALOPERIDOL [Concomitant]
     Indication: TOURETTE'S DISORDER
     Route: 065

REACTIONS (4)
  - AGGRESSION [None]
  - IMPULSIVE BEHAVIOUR [None]
  - SELF MUTILATION [None]
  - TIC [None]
